FAERS Safety Report 8480332-0 (Version None)
Quarter: 2012Q2

REPORT INFORMATION
  Report Type: 
  Country: None (occurrence: None)
  Receive Date: 20120630
  Receipt Date: 20120627
  Transmission Date: 20120825
  Serious: Yes (Hospitalization)
  Sender: FDA-Public Use
  Company Number: FR-TEVA-342689ISR

PATIENT
  Age: 32 Year
  Sex: Female

DRUGS (2)
  1. DEPAKOTE [Suspect]
     Indication: SUICIDE ATTEMPT
     Dosage: INGESTED 50 ENTERIC-COATED TABLETS OF VALPROIC ACID 500MG
  2. OLANZAPINE [Suspect]
     Dosage: INGESTED UNKNOWN AMOUNT OF OLANZAPINE

REACTIONS (8)
  - HYPOKALAEMIA [None]
  - LOSS OF CONSCIOUSNESS [None]
  - MIOSIS [None]
  - HYPERAMMONAEMIA [None]
  - INTENTIONAL OVERDOSE [None]
  - SUICIDE ATTEMPT [None]
  - TOXICITY TO VARIOUS AGENTS [None]
  - TACHYCARDIA [None]
